FAERS Safety Report 6244022-7 (Version None)
Quarter: 2009Q2

REPORT INFORMATION
  Report Type: 
  Country: None (occurrence: None)
  Receive Date: 20090623
  Receipt Date: 20090618
  Transmission Date: 20091009
  Serious: Yes (Other)
  Sender: FDA-Public Use
  Company Number: 2009SP011761

PATIENT
  Age: 73 Year
  Sex: Female

DRUGS (12)
  1. DIAFUSOR (GLYCERYL TRINITRATE) (GLYCERYL TRINITRATE) [Suspect]
     Indication: DRUG USE FOR UNKNOWN INDICATION
     Dosage: 10 MG; QD;
     Dates: start: 20070101
  2. DIAFUSOR (GLYCERYL TRINITRATE) (GLYCERYL TRINITRATE) [Suspect]
     Indication: DRUG USE FOR UNKNOWN INDICATION
     Dosage: 10 MG; QD;
     Dates: start: 20090301
  3. DIAFUSOR (GLYCERYL TRINITRATE) (GLYCERYL TRINITRATE) [Suspect]
     Indication: DRUG USE FOR UNKNOWN INDICATION
     Dosage: 10 MG; QD;
     Dates: start: 20090401
  4. CARDENSIEL [Concomitant]
  5. LEVOTHYROX [Concomitant]
  6. ALLOPURINOL [Concomitant]
  7. LASIX [Concomitant]
  8. PERINDOPRIL ERBUMINE [Concomitant]
  9. ALDACTONE [Concomitant]
  10. ELISOR [Concomitant]
  11. SINTROM [Concomitant]
  12. KALEORID [Concomitant]

REACTIONS (6)
  - COUGH [None]
  - DYSPNOEA [None]
  - PRODUCT QUALITY ISSUE [None]
  - RESPIRATORY DISORDER [None]
  - UNDERDOSE [None]
  - WALKING DISABILITY [None]
